FAERS Safety Report 10154755 (Version 1)
Quarter: 2014Q2

REPORT INFORMATION
  Report Type: Spontaneous
  Country: US (occurrence: None)
  Receive Date: 20140505
  Receipt Date: 20140505
  Transmission Date: 20141212
  Serious: Yes (Other)
  Sender: FDA-Public Use
  Company Number: None

PATIENT
  Age: 35 Year
  Sex: Female
  Weight: 70.31 kg

DRUGS (1)
  1. CYMBALTA [Suspect]
     Indication: DEPRESSION
     Dosage: 1 PILL ONCE DAILY, TAKEN BY MOUTH
     Route: 048

REACTIONS (10)
  - Malaise [None]
  - Influenza like illness [None]
  - Abdominal discomfort [None]
  - Anger [None]
  - Crying [None]
  - Dizziness [None]
  - Dyspnoea [None]
  - Paraesthesia [None]
  - Insomnia [None]
  - Panic attack [None]
